FAERS Safety Report 17694279 (Version 1)
Quarter: 2020Q2

REPORT INFORMATION
  Report Type: Spontaneous
  Country: US (occurrence: US)
  Receive Date: 20200422
  Receipt Date: 20200422
  Transmission Date: 20200714
  Serious: Yes (Hospitalization)
  Sender: FDA-Public Use
  Company Number: US-009507513-2004USA004810

PATIENT
  Age: 45 Year
  Sex: Female

DRUGS (4)
  1. ROSUVASTATIN. [Concomitant]
     Active Substance: ROSUVASTATIN
  2. NOVOLIN NOS [Concomitant]
     Active Substance: INSULIN HUMAN
  3. SIVEXTRO [Suspect]
     Active Substance: TEDIZOLID PHOSPHATE
     Indication: DIABETIC FOOT
  4. SIVEXTRO [Suspect]
     Active Substance: TEDIZOLID PHOSPHATE
     Indication: ULCER
     Route: 048

REACTIONS (5)
  - Diabetic foot [Not Recovered/Not Resolved]
  - Product use in unapproved indication [Unknown]
  - Impaired healing [Not Recovered/Not Resolved]
  - Therapeutic response decreased [Unknown]
  - Peripheral arterial occlusive disease [Not Recovered/Not Resolved]

NARRATIVE: CASE EVENT DATE: 2019
